FAERS Safety Report 6635182-4 (Version None)
Quarter: 2010Q1

REPORT INFORMATION
  Report Type: 
  Country: None (occurrence: None)
  Receive Date: 20100315
  Receipt Date: 20100303
  Transmission Date: 20100710
  Serious: Yes (Death)
  Sender: FDA-Public Use
  Company Number: US-ROCHE-684165

PATIENT
  Sex: Male

DRUGS (1)
  1. MYCOPHENOLATE MOFETIL [Suspect]
     Indication: INTERSTITIAL LUNG DISEASE
     Dosage: ADDITIONAL INDICATION: NON-SPECIFIC INTERSTITIAL PNEUMONITIS.
     Route: 065
     Dates: start: 20080101, end: 20100104

REACTIONS (3)
  - PULMONARY EMBOLISM [None]
  - RESPIRATORY ARREST [None]
  - THROMBOSIS [None]
